FAERS Safety Report 5045627-1 (Version None)
Quarter: 2006Q3

REPORT INFORMATION
  Report Type: 
  Country: None (occurrence: None)
  Receive Date: 20060707
  Receipt Date: 20060630
  Transmission Date: 20061208
  Serious: Yes (Death, Life-Threatening, Hospitalization)
  Sender: FDA-Public Use
  Company Number: DE-ABBOTT-06P-062-0337299-00

PATIENT
  Sex: Male

DRUGS (9)
  1. HUMIRA [Suspect]
     Indication: RHEUMATOID ARTHRITIS
     Route: 058
     Dates: end: 20060605
  2. METHOTREXATE SODIUM [Suspect]
     Indication: RHEUMATOID ARTHRITIS
     Dates: end: 20060605
  3. PREDNISOLONE [Suspect]
     Indication: RHEUMATOID ARTHRITIS
     Route: 048
     Dates: end: 20060605
  4. PREDNISOLONE [Suspect]
     Dates: start: 20060606, end: 20060606
  5. PREDNISOLONE [Suspect]
     Dates: start: 20060607, end: 20060607
  6. PREDNISOLONE [Suspect]
     Dates: start: 20060608, end: 20060609
  7. PREDNISOLONE [Suspect]
     Dates: start: 20060610, end: 20060611
  8. PREDNISOLONE [Suspect]
     Dates: start: 20060612
  9. CELECOXIB [Concomitant]
     Indication: RHEUMATOID ARTHRITIS
     Route: 048

REACTIONS (5)
  - ARTHRALGIA [None]
  - DIARRHOEA [None]
  - MYOCARDIAL INFARCTION [None]
  - RENAL FAILURE ACUTE [None]
  - SEPTIC SHOCK [None]
